FAERS Safety Report 7744381-X (Version None)
Quarter: 2011Q3

REPORT INFORMATION
  Report Type: 
  Country: None (occurrence: None)
  Receive Date: 20110912
  Receipt Date: 20110901
  Transmission Date: 20111222
  Serious: Yes (Hospitalization, Other)
  Sender: FDA-Public Use
  Company Number: US-ASTRAZENECA-2010SE46100

PATIENT
  Age: 78 Year
  Sex: Female
  Weight: 52 kg

DRUGS (21)
  1. SEROQUEL [Suspect]
     Route: 048
  2. SEROQUEL [Suspect]
     Route: 048
     Dates: start: 20090101
  3. SEROQUEL [Suspect]
     Indication: AGITATION
     Route: 048
     Dates: start: 20080101
  4. SEROQUEL [Suspect]
     Indication: BIPOLAR DISORDER
     Route: 048
     Dates: start: 20080101
  5. SEROQUEL [Suspect]
     Route: 048
  6. EROCEF [Concomitant]
     Indication: DEMENTIA
     Route: 048
     Dates: start: 20050101
  7. SEROQUEL [Suspect]
     Route: 048
  8. SEROQUEL [Suspect]
     Route: 048
     Dates: start: 20090101
  9. PLAVIX [Concomitant]
     Indication: CEREBRAL ARTERY OCCLUSION
     Route: 048
     Dates: start: 20080101
  10. ASPIRIN [Concomitant]
     Indication: CARDIAC DISORDER
     Route: 048
  11. SEROQUEL [Suspect]
     Indication: AFFECTIVE DISORDER
     Route: 048
     Dates: start: 20080101
  12. SEROQUEL [Suspect]
     Route: 048
  13. SEROQUEL [Suspect]
     Route: 048
  14. ASPIRIN [Concomitant]
  15. ARICEPT [Concomitant]
  16. PRISTIQ [Concomitant]
     Indication: DEPRESSION
     Route: 048
  17. MEGATE ES [Concomitant]
     Indication: WEIGHT DECREASED
  18. OXYGEN [Concomitant]
  19. SEROQUEL [Suspect]
     Route: 048
  20. SEROQUEL [Suspect]
     Route: 048
     Dates: start: 20090101
  21. VESSICARE [Concomitant]
     Indication: URINARY INCONTINENCE

REACTIONS (11)
  - SOMNOLENCE [None]
  - ABNORMAL BEHAVIOUR [None]
  - DEMENTIA [None]
  - EAR INFECTION [None]
  - CHRONIC OBSTRUCTIVE PULMONARY DISEASE [None]
  - TREMOR [None]
  - DYSKINESIA [None]
  - OFF LABEL USE [None]
  - MYOCARDIAL INFARCTION [None]
  - AGITATION [None]
  - DRUG INEFFECTIVE FOR UNAPPROVED INDICATION [None]
